FAERS Safety Report 8959586 (Version 2)
Quarter: 2013Q1

REPORT INFORMATION
  Report Type: Spontaneous
  Country: US (occurrence: US)
  Receive Date: 20121212
  Receipt Date: 20130130
  Transmission Date: 20140127
  Serious: Yes (Death, Life-Threatening, Other)
  Sender: FDA-Public Use
  Company Number: PHEH2012US024313

PATIENT
  Age: 86 Year
  Sex: Male
  Weight: 81.63 kg

DRUGS (6)
  1. DIOVAN HCT [Suspect]
     Indication: HYPERTENSION
     Dosage: 1 DF (160 MG VALS AND 12.5 MG HCTZ), DAILY
     Route: 048
     Dates: start: 20020201
  2. LIPITOR [Concomitant]
     Dosage: 20 MG, UNK
     Route: 048
  3. NORVASC [Concomitant]
     Indication: BLOOD PRESSURE ABNORMAL
  4. LASIX [Concomitant]
     Dosage: 20 MG, UNK
     Route: 048
  5. ASA [Concomitant]
     Dosage: 325 MG, UNK
     Route: 048
  6. BETA BLOCKING AGENTS [Concomitant]
     Indication: ARRHYTHMIA

REACTIONS (4)
  - Malignant neoplasm of unknown primary site [Fatal]
  - Cerebrovascular accident [Recovered/Resolved with Sequelae]
  - Dyspnoea [Unknown]
  - Back pain [Unknown]
